FAERS Safety Report 7815982-5 (Version None)
Quarter: 2011Q4

REPORT INFORMATION
  Report Type: 
  Country: None (occurrence: None)
  Receive Date: 20111014
  Receipt Date: 20110907
  Transmission Date: 20120403
  Serious: Yes (Hospitalization)
  Sender: FDA-Public Use
  Company Number: DE-ROCHE-GNE324396

PATIENT
  Sex: Female
  Weight: 68 kg

DRUGS (1)
  1. XOLAIR [Suspect]
     Indication: ASTHMA
     Dosage: 1 DF
     Route: 058
     Dates: start: 20110222

REACTIONS (8)
  - DIZZINESS [None]
  - CHILLS [None]
  - HYPERTENSION [None]
  - NAUSEA [None]
  - HYPERSENSITIVITY [None]
  - HYPERTHERMIA [None]
  - ERYTHEMA [None]
  - SWELLING [None]
